FAERS Safety Report 7605677-5 (Version None)
Quarter: 2011Q3

REPORT INFORMATION
  Report Type: 
  Country: None (occurrence: None)
  Receive Date: 20110712
  Receipt Date: 20110712
  Transmission Date: 20111222
  Serious: Yes (Hospitalization)
  Sender: FDA-Public Use
  Company Number: None

PATIENT
  Age: 82 Year
  Sex: Male
  Weight: 79.4 kg

DRUGS (2)
  1. LISINOPRIL [Suspect]
     Indication: HYPERTENSION
     Dosage: 5 MG EVERY DAY PO
     Route: 048
     Dates: start: 20110522, end: 20110629
  2. QUETIAPINE [Suspect]
     Indication: SCHIZOPHRENIA
     Dosage: 25 MG TID PO
     Route: 048
     Dates: start: 20110407

REACTIONS (2)
  - HYPOTENSION [None]
  - DIZZINESS [None]
